FAERS Safety Report 5939737-1 (Version None)
Quarter: 2008Q4

REPORT INFORMATION
  Report Type: 
  Country: None (occurrence: None)
  Receive Date: 20081031
  Receipt Date: 20081031
  Transmission Date: 20090506
  Serious: No
  Sender: FDA-Public Use
  Company Number: None

PATIENT
  Age: 44 Year
  Sex: Male
  Weight: 90.7194 kg

DRUGS (1)
  1. VALPROIC ACID [Suspect]
     Dosage: 1250 MG BID HS PO
     Route: 048

REACTIONS (3)
  - AMMONIA INCREASED [None]
  - COGNITIVE DISORDER [None]
  - LETHARGY [None]
